FAERS Safety Report 18999630 (Version 1)
Quarter: 2021Q1

REPORT INFORMATION
  Report Type: Spontaneous
  Country: BR (occurrence: BR)
  Receive Date: 20210311
  Receipt Date: 20210311
  Transmission Date: 20210420
  Serious: Yes (Other)
  Sender: FDA-Public Use
  Company Number: BR-SA-2020SA341895

PATIENT
  Age: 41 Year
  Sex: Female
  Weight: 64 kg

DRUGS (2)
  1. CLEXANE [Suspect]
     Active Substance: ENOXAPARIN SODIUM
     Indication: PREGNANCY
     Dosage: UNK UNK, QD (AT NIGHT)
     Route: 058
     Dates: start: 202007
  2. ACETYLSALICYLIC ACID [Suspect]
     Active Substance: ASPIRIN
     Indication: HYPERCOAGULATION
     Dosage: 500 MG, QD
     Route: 048
     Dates: start: 202007, end: 20210214

REACTIONS (4)
  - Exposure during pregnancy [Unknown]
  - Gestational diabetes [Unknown]
  - Product use in unapproved indication [Unknown]
  - Device safety feature issue [Unknown]
